FAERS Safety Report 4322654-0 (Version None)
Quarter: 2004Q1

REPORT INFORMATION
  Report Type: 
  Country: None (occurrence: None)
  Receive Date: 20040324
  Receipt Date: 20031222
  Transmission Date: 20041129
  Serious: No
  Sender: FDA-Public Use
  Company Number: US-BRISTOL-MYERS SQUIBB COMPANY-12464426

PATIENT
  Sex: Female
  Weight: 100 kg

DRUGS (4)
  1. REYATAZ [Suspect]
     Indication: HIV INFECTION
     Route: 048
  2. VIDEX [Concomitant]
  3. VIREAD [Concomitant]
  4. RITONAVIR [Concomitant]

REACTIONS (1)
  - HYPERBILIRUBINAEMIA [None]
